FAERS Safety Report 5312299-8 (Version None)
Quarter: 2007Q2

REPORT INFORMATION
  Report Type: 
  Country: None (occurrence: None)
  Receive Date: 20070430
  Receipt Date: 20060815
  Transmission Date: 20071010
  Serious: No
  Sender: FDA-Public Use
  Company Number: 2006UW16298

PATIENT
  Age: 66 Year
  Sex: Female
  Weight: 50.3 kg

DRUGS (4)
  1. NEXIUM [Suspect]
     Indication: OESOPHAGITIS
     Route: 048
     Dates: start: 20060725
  2. FOSAMAX [Concomitant]
  3. CALCIUM CHLORIDE [Concomitant]
  4. MULTI-VITAMIN [Concomitant]

REACTIONS (3)
  - DIARRHOEA [None]
  - DYSPHONIA [None]
  - HEADACHE [None]
